FAERS Safety Report 5868185-8 (Version None)
Quarter: 2008Q3

REPORT INFORMATION
  Report Type: 
  Country: None (occurrence: None)
  Receive Date: 20080902
  Receipt Date: 20080825
  Transmission Date: 20090109
  Serious: Yes (Death)
  Sender: FDA-Public Use
  Company Number: US-GENENTECH-266940

PATIENT
  Sex: Female
  Weight: 67.73 kg

DRUGS (1)
  1. RITUXIMAB [Suspect]
     Dosage: 1000 MG, UNK
     Dates: start: 20080430

REACTIONS (1)
  - DEATH [None]
